FAERS Safety Report 10358511 (Version 1)
Quarter: 2014Q3

REPORT INFORMATION
  Report Type: Spontaneous
  Country: GB (occurrence: GB)
  Receive Date: 20140801
  Receipt Date: 20140801
  Transmission Date: 20150326
  Serious: Yes (Hospitalization)
  Sender: FDA-Public Use
  Company Number: GB-ASTRAZENECA-2014SE54675

PATIENT
  Age: 66 Year
  Sex: Female

DRUGS (1)
  1. ARIMIDEX [Suspect]
     Active Substance: ANASTROZOLE
     Indication: OESTROGEN RECEPTOR POSITIVE BREAST CANCER
     Route: 048

REACTIONS (5)
  - Coagulopathy [None]
  - Autoimmune hepatitis [Recovered/Resolved]
  - Acute hepatic failure [Recovered/Resolved]
  - Liver injury [None]
  - Hypoalbuminaemia [None]
